FAERS Safety Report 8810820 (Version 3)
Quarter: 2012Q4

REPORT INFORMATION
  Report Type: 
  Country: BE (occurrence: BE)
  Receive Date: 20120927
  Receipt Date: 20121126
  Transmission Date: 20130627
  Serious: Yes (Death, Life-Threatening, Hospitalization, Other)
  Sender: FDA-Public Use
  Company Number: BE-ELI_LILLY_AND_COMPANY-BE201209007396

PATIENT
  Age: 56 Year
  Sex: Male
  Weight: 88 kg

DRUGS (3)
  1. EFIENT [Suspect]
     Indication: ACUTE MYOCARDIAL INFARCTION
     Dosage: 60 mg, single
     Dates: start: 20120920, end: 20120920
  2. ACETYLSALICYLIC ACID [Concomitant]
     Dosage: UNK, unknown
     Route: 042
  3. HEPARIN [Concomitant]
     Dosage: 5000 u, unknown

REACTIONS (5)
  - Coma [Fatal]
  - Haemorrhage intracranial [Not Recovered/Not Resolved]
  - Hypertensive crisis [Not Recovered/Not Resolved]
  - Hemiplegia [Not Recovered/Not Resolved]
  - Aphasia [Not Recovered/Not Resolved]
